FAERS Safety Report 6989730-5 (Version None)
Quarter: 2010Q3

REPORT INFORMATION
  Report Type: 
  Country: None (occurrence: None)
  Receive Date: 20100916
  Receipt Date: 20100212
  Transmission Date: 20110219
  Serious: Yes (Other)
  Sender: FDA-Public Use
  Company Number: RO-PFIZER INC-2010018828

PATIENT
  Sex: Female
  Weight: 70 kg

DRUGS (4)
  1. LYRICA [Suspect]
     Indication: NEURALGIA
     Dosage: 150 MG, 1X/DAY
     Dates: start: 20100205, end: 20100207
  2. TADOR [Concomitant]
     Dosage: 25 MG, 1X/DAY
  3. OMERAN [Concomitant]
     Dosage: 20 MG, 2X/DAY
  4. XANAX [Concomitant]
     Dosage: 0.25 ONE HALF TABLET PER DAY

REACTIONS (1)
  - VISION BLURRED [None]
